FAERS Safety Report 4293182-6 (Version None)
Quarter: 2004Q1

REPORT INFORMATION
  Report Type: 
  Country: None (occurrence: None)
  Receive Date: 20040210
  Receipt Date: 20040203
  Transmission Date: 20041129
  Serious: Yes (Death)
  Sender: FDA-Public Use
  Company Number: US-JNJFOC-20040200968

PATIENT
  Age: 77 Year
  Sex: Female

DRUGS (10)
  1. DURAGESIC [Suspect]
     Indication: PAIN
     Dosage: 25 UG/HR, 1 IN 72 HOURS, TRANSDERMAL
     Route: 062
     Dates: end: 20040117
  2. PROTONIX (CAPSULES) PANTOPRAZOLE [Concomitant]
  3. CARDIZEM (CAPSULES) DILTIAZEM HYDROCHLORIDE [Concomitant]
  4. LASIX [Concomitant]
  5. COZAAR [Concomitant]
  6. PREDNISONE [Concomitant]
  7. VIOXX [Concomitant]
  8. ZAROXOLYN [Concomitant]
  9. NEURONTIN [Concomitant]
  10. XANAX [Concomitant]

REACTIONS (1)
  - DEATH [None]
